FAERS Safety Report 7519186-5 (Version None)
Quarter: 2011Q2

REPORT INFORMATION
  Report Type: 
  Country: None (occurrence: None)
  Receive Date: 20110602
  Receipt Date: 20110427
  Transmission Date: 20111010
  Serious: No
  Sender: FDA-Public Use
  Company Number: US-BRISTOL-MYERS SQUIBB COMPANY-15702400

PATIENT
  Age: 60 Year
  Sex: Female

DRUGS (4)
  1. ALTACE [Concomitant]
  2. KOMBIGLYZE XR [Suspect]
     Dates: start: 20110321
  3. PREMARIN [Concomitant]
  4. XANAX [Concomitant]

REACTIONS (1)
  - HEADACHE [None]
